FAERS Safety Report 8775494 (Version 2)
Quarter: 2012Q4

REPORT INFORMATION
  Report Type: 
  Country: PR (occurrence: PR)
  Receive Date: 20120909
  Receipt Date: 20120922
  Transmission Date: 20130627
  Serious: Yes (Other)
  Sender: FDA-Public Use
  Company Number: PR-ABBOTT-12P-131-0973142-00

PATIENT
  Age: 60 None
  Sex: Female
  Weight: 83.99 kg

DRUGS (10)
  1. HUMIRA 40 MG/0.8 ML PEN [Suspect]
     Indication: RHEUMATOID ARTHRITIS
     Route: 058
     Dates: end: 20120810
  2. MEDROL [Concomitant]
     Indication: RHEUMATOID ARTHRITIS
     Route: 048
     Dates: start: 1979
  3. ZANTAC [Concomitant]
     Indication: GASTRITIS
     Dosage: BEDTIME
     Route: 048
  4. PRILOSEC [Concomitant]
     Indication: GASTRITIS
     Dosage: IN THE MORNING
     Route: 048
  5. TOPAMAX [Concomitant]
     Indication: MIGRAINE
     Dosage: AT BEDTIME
     Route: 048
  6. ELAVIL [Concomitant]
     Indication: MIGRAINE
     Dosage: AT BEDTIME
     Route: 048
  7. SUMATRIPTAN [Concomitant]
     Indication: MIGRAINE
     Dosage: 1-2 tablets in 24 hours
     Route: 048
  8. FIORICET [Concomitant]
     Indication: MIGRAINE
     Dosage: 2 tab every 2 hr, not to exceed 4 tab in 24hr
     Route: 048
  9. ATARAX [Concomitant]
     Indication: PRURITUS
     Dosage: 1 tab every 4 hr not to exceed 2 tab in 24hr PRN
     Route: 048
  10. MOBIC [Concomitant]
     Indication: RHEUMATOID ARTHRITIS
     Route: 048
     Dates: start: 1995

REACTIONS (3)
  - Nerve compression [Recovering/Resolving]
  - Cataract [Not Recovered/Not Resolved]
  - Constipation [Unknown]
